FAERS Safety Report 15931862 (Version 2)
Quarter: 2020Q1

REPORT INFORMATION
  Report Type: Report from Study
  Country: None (occurrence: US)
  Receive Date: 20190207
  Receipt Date: 20200121
  Transmission Date: 20200409
  Serious: Yes (Other)
  Sender: FDA-Public Use
  Company Number: US-ABBVIE-18K-163-2593248-00

PATIENT
  Age: 61 Year
  Sex: Female

DRUGS (2)
  1. HUMIRA [Suspect]
     Active Substance: ADALIMUMAB
     Indication: RHEUMATOID ARTHRITIS
     Route: 058
  2. VALSARTAN. [Concomitant]
     Active Substance: VALSARTAN
     Indication: HYPERTENSION

REACTIONS (6)
  - Fall [Unknown]
  - Dry eye [Not Recovered/Not Resolved]
  - Rotator cuff syndrome [Recovered/Resolved]
  - Limb deformity [Recovered/Resolved]
  - Vision blurred [Not Recovered/Not Resolved]
  - Osteomalacia [Unknown]

NARRATIVE: CASE EVENT DATE: 201811
